FAERS Safety Report 7703800-5 (Version None)
Quarter: 2011Q3

REPORT INFORMATION
  Report Type: 
  Country: None (occurrence: None)
  Receive Date: 20110823
  Receipt Date: 20101221
  Transmission Date: 20111222
  Serious: Yes (Death)
  Sender: FDA-Public Use
  Company Number: FR-ROCHE-749219

PATIENT
  Sex: Female
  Weight: 61 kg

DRUGS (3)
  1. BEVACIZUMAB [Suspect]
     Indication: CHEMOTHERAPY
     Route: 042
     Dates: start: 20100922, end: 20101104
  2. PEMETREXED [Suspect]
     Indication: CHEMOTHERAPY
     Route: 042
     Dates: start: 20100922, end: 20101204
  3. CISPLATIN [Suspect]
     Indication: CHEMOTHERAPY
     Route: 042
     Dates: start: 20100922, end: 20101104

REACTIONS (1)
  - LUNG NEOPLASM MALIGNANT [None]
